FAERS Safety Report 20203285 (Version 1)
Quarter: 2021Q4

REPORT INFORMATION
  Report Type: Report from Study
  Country: CH (occurrence: CH)
  Receive Date: 20211218
  Receipt Date: 20211218
  Transmission Date: 20220303
  Serious: Yes (Hospitalization)
  Sender: FDA-Public Use
  Company Number: CH-ABBVIE-21K-151-4198583-00

PATIENT
  Age: 68 Year
  Sex: Male

DRUGS (3)
  1. CARBIDOPA\LEVODOPA [Suspect]
     Active Substance: CARBIDOPA\LEVODOPA
     Indication: Parkinson^s disease
     Dosage: 1 CASSETTE A DAY
     Route: 050
     Dates: start: 20171115
  2. CARBIDOPA\LEVODOPA [Suspect]
     Active Substance: CARBIDOPA\LEVODOPA
     Dosage: MD: 4.3 ML, CRD: 4.2 ML/H, CRN: 2.2 ML/H, ED: 1.0 ML
     Route: 050
     Dates: start: 20210702, end: 20211103
  3. CARBIDOPA\LEVODOPA [Suspect]
     Active Substance: CARBIDOPA\LEVODOPA
     Dosage: MD: 4.3 ML, CRD: 4.2 ML/H, CRN: 2.2 ML/H, ED: 1.0 ML?24 H THERAPY
     Route: 050
     Dates: start: 20211103

REACTIONS (1)
  - Therapy change [Recovered/Resolved]

NARRATIVE: CASE EVENT DATE: 20211101
